FAERS Safety Report 10260232 (Version 3)
Quarter: 2015Q1

REPORT INFORMATION
  Report Type: Spontaneous
  Country: US (occurrence: US)
  Receive Date: 20140625
  Receipt Date: 20150204
  Transmission Date: 20150720
  Serious: Yes (Hospitalization)
  Sender: FDA-Public Use
  Company Number: US-SA-2014SA039362

PATIENT
  Age: 53 Year
  Sex: Female

DRUGS (18)
  1. PROPYLTHIOURACIL. [Concomitant]
     Active Substance: PROPYLTHIOURACIL
  2. DULERA [Concomitant]
     Active Substance: FORMOTEROL FUMARATE DIHYDRATE\MOMETASONE FUROATE
  3. SPIRIVA [Concomitant]
     Active Substance: TIOTROPIUM BROMIDE MONOHYDRATE
  4. VITAMIN B12 [Concomitant]
     Active Substance: CYANOCOBALAMIN
  5. MODAFINIL. [Concomitant]
     Active Substance: MODAFINIL
  6. CLARITHROMYCIN. [Concomitant]
     Active Substance: CLARITHROMYCIN
  7. VITAMIN D3 [Concomitant]
     Active Substance: CHOLECALCIFEROL
  8. OMEPRAZOLE. [Concomitant]
     Active Substance: OMEPRAZOLE
  9. VITAMIN C [Concomitant]
     Active Substance: ASCORBIC ACID
  10. ALPRAZOLAM. [Concomitant]
     Active Substance: ALPRAZOLAM
  11. BETHANECHOL [Concomitant]
     Active Substance: BETHANECHOL
  12. PAXIL [Concomitant]
     Active Substance: PAROXETINE HYDROCHLORIDE
  13. ASPIRIN. [Concomitant]
     Active Substance: ASPIRIN
  14. COMBIVENT [Concomitant]
     Active Substance: ALBUTEROL SULFATE\IPRATROPIUM BROMIDE
  15. AUBAGIO [Suspect]
     Active Substance: TERIFLUNOMIDE
     Indication: MULTIPLE SCLEROSIS
     Route: 048
     Dates: start: 20130918
  16. ASACOL [Concomitant]
     Active Substance: MESALAMINE
  17. BACLOFEN. [Concomitant]
     Active Substance: BACLOFEN
  18. DIFICID [Concomitant]
     Active Substance: FIDAXOMICIN

REACTIONS (3)
  - Infection [Unknown]
  - Drug ineffective [Unknown]
  - Unevaluable event [Recovered/Resolved]

NARRATIVE: CASE EVENT DATE: 20140324
